FAERS Safety Report 9606156 (Version 1)
Quarter: 2013Q4

REPORT INFORMATION
  Report Type: Spontaneous
  Country: US (occurrence: US)
  Receive Date: 20131008
  Receipt Date: 20131008
  Transmission Date: 20140711
  Serious: No
  Sender: FDA-Public Use
  Company Number: US-AMGEN-USASP2013043691

PATIENT
  Sex: Female

DRUGS (1)
  1. PROLIA [Suspect]
     Indication: OSTEOPOROSIS POSTMENOPAUSAL
     Dosage: UNK
     Dates: start: 20130515

REACTIONS (5)
  - Nasopharyngitis [Recovered/Resolved]
  - Scab [Unknown]
  - Upper respiratory tract infection [Recovered/Resolved]
  - Urticaria [Unknown]
  - Rash [Unknown]
